FAERS Safety Report 9458340 (Version 2)
Quarter: 2013Q3

REPORT INFORMATION
  Report Type: Spontaneous
  Country: US (occurrence: US)
  Receive Date: 20130814
  Receipt Date: 20130924
  Transmission Date: 20140515
  Serious: Yes (Other)
  Sender: FDA-Public Use
  Company Number: US-PFIZER INC-2013233094

PATIENT
  Age: 68 Year
  Sex: Male
  Weight: 81.63 kg

DRUGS (1)
  1. LEVOXYL [Suspect]
     Indication: HYPOTHYROIDISM
     Dosage: 150 UG, 1X/DAY
     Route: 048

REACTIONS (1)
  - Lung neoplasm malignant [Unknown]
